FAERS Safety Report 5492674-1 (Version None)
Quarter: 2007Q4

REPORT INFORMATION
  Report Type: 
  Country: None (occurrence: None)
  Receive Date: 20071022
  Receipt Date: 20071011
  Transmission Date: 20080405
  Serious: Yes (Other)
  Sender: FDA-Public Use
  Company Number: US-PFIZER INC-2007086713

PATIENT
  Sex: Female
  Weight: 60.909 kg

DRUGS (7)
  1. CHANTIX [Suspect]
     Indication: SMOKING CESSATION THERAPY
     Dates: start: 20070928, end: 20071005
  2. ACETYLSALICYLIC ACID SRT [Concomitant]
  3. OMEPRAZOLE [Concomitant]
     Indication: GASTROOESOPHAGEAL REFLUX DISEASE
  4. PRAVASTATIN [Concomitant]
     Indication: BLOOD CHOLESTEROL INCREASED
  5. IBANDRONATE SODIUM [Concomitant]
     Indication: OSTEOPOROSIS
  6. CALCIUM [Concomitant]
  7. SENOKOT [Concomitant]

REACTIONS (2)
  - CHEST DISCOMFORT [None]
  - PHARYNGEAL OEDEMA [None]
